FAERS Safety Report 7528756 (Version 4)
Quarter: 2014Q2

REPORT INFORMATION
  Report Type: Report from Study
  Country: MX (occurrence: MX)
  Receive Date: 20100805
  Receipt Date: 20140609
  Transmission Date: 20141212
  Serious: Yes (Other)
  Sender: FDA-Public Use
  Company Number: PHHY2010MX48983

PATIENT
  Age: 72 Year
  Sex: Female

DRUGS (2)
  1. CO-DIOVAN [Suspect]
     Indication: HYPERTENSION
     Dosage: 1 DF(80/12.5MG), DAILY
     Route: 048
     Dates: start: 20090612
  2. CO-DIOVAN [Suspect]
     Dosage: 0.5 DF (80/12.5MG), DAILY
     Route: 048
     Dates: start: 201308

REACTIONS (20)
  - Dislocation of vertebra [Recovered/Resolved]
  - Pneumonia [Recovered/Resolved]
  - Pyrexia [Recovered/Resolved]
  - Fall [Not Recovered/Not Resolved]
  - Patella fracture [Not Recovered/Not Resolved]
  - Increased bronchial secretion [Recovered/Resolved]
  - Lower respiratory tract inflammation [Recovered/Resolved]
  - Musculoskeletal pain [Recovering/Resolving]
  - Device malfunction [Not Recovered/Not Resolved]
  - Gait disturbance [Recovered/Resolved]
  - Bone disorder [Not Recovered/Not Resolved]
  - Weight decreased [Not Recovered/Not Resolved]
  - Influenza [Recovered/Resolved]
  - Pain in extremity [Recovered/Resolved]
  - Blood pressure fluctuation [Not Recovered/Not Resolved]
  - Tinnitus [Not Recovered/Not Resolved]
  - Pruritus [Not Recovered/Not Resolved]
  - Depression [Recovered/Resolved]
  - Insomnia [Recovered/Resolved]
  - Wrong technique in drug usage process [Not Recovered/Not Resolved]
